FAERS Safety Report 20953739 (Version 3)
Quarter: 2022Q3

REPORT INFORMATION
  Report Type: Report from Study
  Country: DE (occurrence: DE)
  Receive Date: 20220613
  Receipt Date: 20220822
  Transmission Date: 20221027
  Serious: Yes (Hospitalization)
  Sender: FDA-Public Use
  Company Number: DE-JNJFOC-20220618122

PATIENT
  Age: 6 Decade
  Sex: Male

DRUGS (2)
  1. DARZALEX [Suspect]
     Active Substance: DARATUMUMAB
     Indication: Product used for unknown indication
     Dosage: LAST DOSE BEFORE SAE: 01-MAR-2022.?30 DAYS AFTER THERAPY: 31-MAR-2022.
     Route: 058
     Dates: start: 20220104
  2. LENALIDOMIDE [Suspect]
     Active Substance: LENALIDOMIDE
     Indication: Product used for unknown indication
     Dosage: LAST DOSE BEFORE SAE: 01-MAR-2022?30 DAYS AFTER THERAPY: 31-MAR-2022
     Route: 048
     Dates: start: 20211230

REACTIONS (1)
  - COVID-19 [Recovered/Resolved with Sequelae]

NARRATIVE: CASE EVENT DATE: 20220310
